FAERS Safety Report 15833888 (Version 2)
Quarter: 2019Q1

REPORT INFORMATION
  Report Type: Spontaneous
  Country: PL (occurrence: PL)
  Receive Date: 20190116
  Receipt Date: 20190328
  Transmission Date: 20190417
  Serious: Yes (Other)
  Sender: FDA-Public Use
  Company Number: PL-VIFOR (INTERNATIONAL) INC.-VIT-2018-10860

PATIENT
  Age: 24 Year
  Sex: Female
  Weight: 47 kg

DRUGS (9)
  1. SORTIS [Suspect]
     Active Substance: ATORVASTATIN
     Indication: LIPIDS ABNORMAL
  2. SORTIS [Suspect]
     Active Substance: ATORVASTATIN
     Indication: BLOOD CHOLESTEROL
     Route: 048
     Dates: start: 201502, end: 20181020
  3. AMLOZEK [Concomitant]
     Active Substance: AMLODIPINE BESYLATE
     Indication: HYPERTENSION
     Route: 048
     Dates: start: 201502, end: 20181020
  4. MIRCERA [Suspect]
     Active Substance: METHOXY POLYETHYLENE GLYCOL-EPOETIN BETA
     Indication: ANAEMIA
     Dosage: 50-100 MICROGRAM
     Route: 042
     Dates: start: 201502
  5. MIRCERA [Suspect]
     Active Substance: METHOXY POLYETHYLENE GLYCOL-EPOETIN BETA
     Route: 042
     Dates: start: 20181010
  6. TELMISARTAN. [Suspect]
     Active Substance: TELMISARTAN
     Indication: HYPERTENSION
     Route: 048
     Dates: start: 201602, end: 20181010
  7. SORTIS [Suspect]
     Active Substance: ATORVASTATIN
     Indication: LIPIDS ABNORMAL
  8. VIVACOR [Concomitant]
     Active Substance: BISOPROLOL FUMARATE
     Indication: HYPERTENSION
     Route: 048
     Dates: start: 201505, end: 20181010
  9. CONTROLOC [Concomitant]
     Active Substance: PANTOPRAZOLE SODIUM
     Indication: PEPTIC ULCER
     Dates: start: 201502, end: 20181020

REACTIONS (2)
  - Abortion spontaneous [Unknown]
  - Maternal exposure during pregnancy [Unknown]

NARRATIVE: CASE EVENT DATE: 20181010
